FAERS Safety Report 17215119 (Version 11)
Quarter: 2021Q1

REPORT INFORMATION
  Report Type: Spontaneous
  Country: CA (occurrence: CA)
  Receive Date: 20191230
  Receipt Date: 20210225
  Transmission Date: 20210419
  Serious: Yes (Hospitalization, Other)
  Sender: FDA-Public Use
  Company Number: CA-CELLTRION INC.-2019CA027597

PATIENT

DRUGS (12)
  1. INFLECTRA [Suspect]
     Active Substance: INFLIXIMAB-DYYB
     Dosage: 300 MG Q (EVERY 8 WEEKS)
     Route: 042
     Dates: start: 20191216
  2. INFLECTRA [Suspect]
     Active Substance: INFLIXIMAB-DYYB
     Dosage: 300 MG Q (EVERY 8 WEEKS)
     Route: 042
     Dates: start: 20201026
  3. INFLECTRA [Suspect]
     Active Substance: INFLIXIMAB-DYYB
     Dosage: 300 MG Q (EVERY 8 WEEKS)
     Route: 042
     Dates: start: 20191121
  4. INFLECTRA [Suspect]
     Active Substance: INFLIXIMAB-DYYB
     Dosage: 300 MG Q (EVERY 8 WEEKS)
     Route: 042
     Dates: start: 20191218
  5. INFLECTRA [Suspect]
     Active Substance: INFLIXIMAB-DYYB
     Dosage: 300 MG Q (EVERY 8 WEEKS)
     Route: 042
     Dates: start: 20200831
  6. INFLECTRA [Suspect]
     Active Substance: INFLIXIMAB-DYYB
     Dosage: 300 MG Q (EVERY 8 WEEKS)
     Route: 042
     Dates: start: 20201221
  7. INFLECTRA [Suspect]
     Active Substance: INFLIXIMAB-DYYB
     Dosage: 300 MG Q (EVERY 8 WEEKS)
     Route: 042
  8. COLESTID [Concomitant]
     Active Substance: COLESTIPOL HYDROCHLORIDE
     Dosage: UNK
  9. INFLECTRA [Suspect]
     Active Substance: INFLIXIMAB-DYYB
     Indication: CROHN^S DISEASE
     Dosage: 300 MG Q (EVERY 8 WEEKS)
     Route: 042
     Dates: start: 20191106
  10. INFLECTRA [Suspect]
     Active Substance: INFLIXIMAB-DYYB
     Dosage: 300 MG Q (EVERY 8 WEEKS)
     Route: 042
     Dates: start: 20191108
  11. TECTA [Concomitant]
     Active Substance: PANTOPRAZOLE MAGNESIUM
     Dosage: 40 MG, DAILY
  12. INFLECTRA [Suspect]
     Active Substance: INFLIXIMAB-DYYB
     Dosage: 300 MG Q (EVERY 8 WEEKS)
     Route: 042

REACTIONS (7)
  - Nephrolithiasis [Recovering/Resolving]
  - Weight decreased [Unknown]
  - Pyrexia [Recovered/Resolved]
  - Urinary tract infection [Recovering/Resolving]
  - Chills [Recovered/Resolved]
  - Condition aggravated [Unknown]
  - Angina pectoris [Recovered/Resolved]

NARRATIVE: CASE EVENT DATE: 20191122
